FAERS Safety Report 5192789-1 (Version None)
Quarter: 2006Q4

REPORT INFORMATION
  Report Type: 
  Country: None (occurrence: None)
  Receive Date: 20061228
  Receipt Date: 20051004
  Transmission Date: 20070319
  Serious: No
  Sender: FDA-Public Use
  Company Number: US-GLAXOSMITHKLINE-A0576962A

PATIENT
  Age: 72 Year
  Sex: Male

DRUGS (8)
  1. FLONASE [Suspect]
     Dosage: 2SPR PER DAY
     Route: 045
  2. MULTI-VITAMIN [Concomitant]
  3. VIT C [Concomitant]
  4. FISH OIL [Concomitant]
  5. GARLIC [Concomitant]
  6. VIT E [Concomitant]
  7. ASPIRIN [Concomitant]
  8. LYSINE [Concomitant]

REACTIONS (2)
  - DRUG INEFFECTIVE [None]
  - PHARMACEUTICAL PRODUCT COMPLAINT [None]
